FAERS Safety Report 12631299 (Version 2)
Quarter: 2016Q3

REPORT INFORMATION
  Report Type: Spontaneous
  Country: US (occurrence: US)
  Receive Date: 20160808
  Receipt Date: 20160808
  Transmission Date: 20161109
  Serious: No
  Sender: FDA-Public Use
  Company Number: US-BEH-2015053212

PATIENT
  Sex: Female

DRUGS (1)
  1. HIZENTRA [Suspect]
     Active Substance: HUMAN IMMUNOGLOBULIN G
     Indication: PRODUCT USED FOR UNKNOWN INDICATION
     Dates: start: 20150812

REACTIONS (5)
  - Infusion site pain [Unknown]
  - Infusion site warmth [Unknown]
  - Chest pain [Unknown]
  - Infusion site swelling [Unknown]
  - Infusion site erythema [Unknown]
